FAERS Safety Report 8209512-6 (Version None)
Quarter: 2012Q1

REPORT INFORMATION
  Report Type: 
  Country: None (occurrence: None)
  Receive Date: 20120314
  Receipt Date: 20120304
  Transmission Date: 20120608
  Serious: Yes (Hospitalization)
  Sender: FDA-Public Use
  Company Number: DE-ELI_LILLY_AND_COMPANY-DE201203001444

PATIENT
  Age: 65 Year
  Sex: Female

DRUGS (3)
  1. PANTOPRAZOLE [Concomitant]
     Dosage: UNK
  2. HUMALOG [Suspect]
     Indication: DIABETES MELLITUS
     Dosage: UNK, PRN
     Route: 058
     Dates: start: 20120201
  3. PANCREATIC ENZYMES [Concomitant]
     Dosage: UNK

REACTIONS (7)
  - HEART RATE INCREASED [None]
  - SYNCOPE [None]
  - HYPERTENSION [None]
  - HYPERHIDROSIS [None]
  - DYSPNOEA [None]
  - NAUSEA [None]
  - FEELING ABNORMAL [None]
